FAERS Safety Report 7945367-2 (Version None)
Quarter: 2011Q4

REPORT INFORMATION
  Report Type: 
  Country: None (occurrence: None)
  Receive Date: 20111129
  Receipt Date: 20110525
  Transmission Date: 20120403
  Serious: No
  Sender: FDA-Public Use
  Company Number: US-GLAXOSMITHKLINE-A0929132A

PATIENT
  Age: 55 Year
  Sex: Female

DRUGS (8)
  1. LOVASTATIN [Concomitant]
  2. DICLOFENAC SODIUM [Concomitant]
  3. TOPAMAX [Concomitant]
  4. CLONIDINE [Concomitant]
  5. VERAPAMIL [Concomitant]
  6. PROMETHAZINE [Concomitant]
  7. WELLBUTRIN SR [Suspect]
     Indication: DEPRESSION
     Dosage: 150MG TWICE PER DAY
     Route: 048
     Dates: start: 20100101
  8. CYMBALTA [Concomitant]

REACTIONS (7)
  - HEADACHE [None]
  - DYSGEUSIA [None]
  - PRODUCT TASTE ABNORMAL [None]
  - PAROSMIA [None]
  - PRODUCT QUALITY ISSUE [None]
  - ABDOMINAL PAIN UPPER [None]
  - ABDOMINAL DISCOMFORT [None]
